FAERS Safety Report 6714166-1 (Version None)
Quarter: 2010Q2

REPORT INFORMATION
  Report Type: 
  Country: None (occurrence: None)
  Receive Date: 20100503
  Receipt Date: 20100419
  Transmission Date: 20101027
  Serious: Yes (Hospitalization, Disabling, Other)
  Sender: FDA-Public Use
  Company Number: 010166

PATIENT
  Sex: Female
  Weight: 60 kg

DRUGS (2)
  1. KEPPRA [Suspect]
     Dosage: (1250 MG BID, ORAL / I.V.)
     Dates: start: 20100301, end: 20100303
  2. RIVOTRIL (RIVOTRIL) (NOT SPECIFIED) [Suspect]
     Indication: STATUS EPILEPTICUS
     Dosage: (2 AMPOULES INTRAVENOUS)
     Route: 042

REACTIONS (7)
  - DRUG INTOLERANCE [None]
  - ELECTROENCEPHALOGRAM ABNORMAL [None]
  - PSYCHOMOTOR SKILLS IMPAIRED [None]
  - RHABDOMYOLYSIS [None]
  - SOMNOLENCE [None]
  - SPEECH DISORDER [None]
  - STATUS EPILEPTICUS [None]
